FAERS Safety Report 6817083-1 (Version None)
Quarter: 2010Q2

REPORT INFORMATION
  Report Type: 
  Country: None (occurrence: None)
  Receive Date: 20100630
  Receipt Date: 20100615
  Transmission Date: 20101027
  Serious: No
  Sender: FDA-Public Use
  Company Number: 009438

PATIENT
  Age: 76 Year
  Sex: Female

DRUGS (4)
  1. PLETAL [Suspect]
     Dosage: 100 MG, QD ORAL
     Route: 048
     Dates: start: 20010605, end: 20010627
  2. PRAVASTATIN SODIUM [Suspect]
     Dosage: 10 MG, QD, ORAL
     Route: 048
     Dates: start: 20010605, end: 20010627
  3. LENDORMIN (BROTIZOLAM) (TABLET) [Suspect]
     Dosage: 0.25 MG, QD, ORAL
     Dates: start: 20010605, end: 20010627
  4. FUTHAN (NAFAMOSTAT MESILATE) [Suspect]
     Indication: RENAL FAILURE CHRONIC
     Dosage: 150 MG AT HEMODIALYSIS

REACTIONS (1)
  - NEUTROPENIA [None]
